FAERS Safety Report 5224733-2 (Version None)
Quarter: 2007Q1

REPORT INFORMATION
  Report Type: 
  Country: None (occurrence: None)
  Receive Date: 20070129
  Receipt Date: 20070129
  Transmission Date: 20070707
  Serious: Yes (Life-Threatening, Hospitalization)
  Sender: FDA-Public Use
  Company Number: None

PATIENT
  Sex: Female

DRUGS (12)
  1. PIPERACILLIN AND TAZOBACTAM [Suspect]
     Indication: PNEUMONIA
     Dosage: IV
     Route: 042
     Dates: start: 20061123
  2. CONTRAST DYE [Suspect]
     Indication: COMPUTERISED TOMOGRAM
     Dates: start: 20061123
  3. LEVOFLOXACIN [Concomitant]
  4. NOREPINEPHRINE BITARTRATE [Concomitant]
  5. QUINAPRIL [Concomitant]
  6. GLIPIZIDE [Concomitant]
  7. ALPRAZOLAM [Concomitant]
  8. HYDROCODONE BITARTRATE [Concomitant]
  9. HUMULIN 70/30 [Concomitant]
  10. VERAPAMIL [Concomitant]
  11. CELECOXIB [Concomitant]
  12. PREDNISONE EYE DROPS [Concomitant]

REACTIONS (3)
  - ACUTE RESPIRATORY FAILURE [None]
  - ANGIOEDEMA [None]
  - THROMBOCYTOPENIA [None]
